FAERS Safety Report 9729992 (Version 3)
Quarter: 2014Q1

REPORT INFORMATION
  Report Type: Spontaneous
  Country: GB (occurrence: None)
  Receive Date: 20131203
  Receipt Date: 20140113
  Transmission Date: 20141002
  Serious: Yes (Other)
  Sender: FDA-Public Use
  Company Number: AUR-APL-2013-09150

PATIENT
  Age: 34 Year
  Sex: Male

DRUGS (3)
  1. QUETIAPINE [Suspect]
     Indication: PRODUCT USED FOR UNKNOWN INDICATION
     Dosage: UKNOWN
  2. CLOZARIL [Suspect]
     Indication: SCHIZOPHRENIA
     Dosage: ORAL
     Route: 048
     Dates: start: 20131008, end: 20131212
  3. METFORMIN (METFORMIN) [Concomitant]

REACTIONS (3)
  - Heart rate increased [None]
  - Blood pressure increased [None]
  - Drug intolerance [None]
